FAERS Safety Report 25330268 (Version 1)
Quarter: 2025Q2

REPORT INFORMATION
  Report Type: Spontaneous
  Country: CN (occurrence: CN)
  Receive Date: 20250519
  Receipt Date: 20250519
  Transmission Date: 20250716
  Serious: Yes (Disabling)
  Sender: MYLAN
  Company Number: CN-MYLANLABS-2025M1040754

PATIENT
  Age: 55 Year
  Sex: Male

DRUGS (2)
  1. LIPITOR [Suspect]
     Active Substance: ATORVASTATIN CALCIUM
     Indication: Diabetes mellitus
     Dosage: 20 MILLIGRAM, QD
     Dates: start: 20250413, end: 20250415
  2. PENTOXIFYLLINE [Concomitant]
     Active Substance: PENTOXIFYLLINE
     Indication: Diabetes mellitus
     Dosage: 0.2 GRAM, QD
     Dates: start: 20250415, end: 20250503

REACTIONS (2)
  - Myocardial injury [Recovering/Resolving]
  - Off label use [Unknown]

NARRATIVE: CASE EVENT DATE: 20250414
